FAERS Safety Report 4648455-1 (Version None)
Quarter: 2005Q2

REPORT INFORMATION
  Report Type: 
  Country: None (occurrence: None)
  Receive Date: 20050427
  Receipt Date: 20050412
  Transmission Date: 20051028
  Serious: Yes (Death, Hospitalization)
  Sender: FDA-Public Use
  Company Number: JP_050105573

PATIENT
  Age: 54 Year
  Sex: Male
  Weight: 52 kg

DRUGS (9)
  1. ZYPREXA [Suspect]
     Indication: SCHIZOPHRENIA
     Dosage: 5 MG/L DAY
     Dates: start: 20040726, end: 20041011
  2. RISPERDAL [Concomitant]
  3. AKINETON [Concomitant]
  4. DEPAKENE [Concomitant]
  5. DORAL [Concomitant]
  6. DESYREL [Concomitant]
  7. BIASAN [Concomitant]
  8. PENTONA (MAZATICOL HYDROCHLORIDE) [Concomitant]
  9. HANGEKOUBOKUTOU [Concomitant]

REACTIONS (5)
  - AGGRESSION [None]
  - CHOKING [None]
  - FALL [None]
  - PLEURISY [None]
  - RESTLESSNESS [None]
